FAERS Safety Report 10481324 (Version 1)
Quarter: 2014Q3

REPORT INFORMATION
  Report Type: Spontaneous
  Country: US (occurrence: None)
  Receive Date: 20140908
  Receipt Date: 20140908
  Transmission Date: 20150326
  Serious: Yes (Other)
  Sender: FDA-Public Use
  Company Number: 384385

PATIENT
  Sex: Female

DRUGS (4)
  1. VICTOZA [Suspect]
     Active Substance: LIRAGLUTIDE
     Indication: DIABETES MELLITUS INADEQUATE CONTROL
     Route: 058
     Dates: start: 20130622, end: 20130630
  2. GLIPIZIDE. [Concomitant]
     Active Substance: GLIPIZIDE
  3. BENADRYL /00000402/ (DIPHENHYDRAMINE HYDROCHLORIDE) [Concomitant]
  4. LISINOPRIL. [Concomitant]
     Active Substance: LISINOPRIL

REACTIONS (2)
  - Nephrolithiasis [None]
  - Pancreatitis [None]

NARRATIVE: CASE EVENT DATE: 20130627
